FAERS Safety Report 4992593-0 (Version None)
Quarter: 2006Q1

REPORT INFORMATION
  Report Type: 
  Country: None (occurrence: None)
  Receive Date: 20060314
  Receipt Date: 20051129
  Transmission Date: 20060701
  Serious: No
  Sender: FDA-Public Use
  Company Number: 2005-02458

PATIENT
  Age: 80 Year
  Sex: Female
  Weight: 81.6 kg

DRUGS (4)
  1. VELCADE (BORTEZPMIB) INJECTION [Suspect]
     Indication: MULTIPLE MYELOMA
     Dates: start: 20040101, end: 20050101
  2. THALIDOMIDE (THALIDOMIDE) [Suspect]
     Indication: MULTIPLE MYELOMA
     Dates: start: 20040101
  3. ANTIHYPERTENSIVES [Concomitant]
  4. VITAMINS [Concomitant]

REACTIONS (1)
  - NEUROPATHY PERIPHERAL [None]
